FAERS Safety Report 18306678 (Version 3)
Quarter: 2020Q4

REPORT INFORMATION
  Report Type: Spontaneous
  Country: US (occurrence: US)
  Receive Date: 20200924
  Receipt Date: 20201111
  Transmission Date: 20210113
  Serious: Yes (Death, Other)
  Sender: FDA-Public Use
  Company Number: US-GLAXOSMITHKLINE-US2020AMR190227

PATIENT
  Age: 80 Year
  Sex: Male

DRUGS (1)
  1. TRELEGY ELLIPTA [Suspect]
     Active Substance: FLUTICASONE FUROATE\UMECLIDINIUM BROMIDE\VILANTEROL TRIFENATATE
     Indication: CHRONIC OBSTRUCTIVE PULMONARY DISEASE
     Dosage: 1 PUFF(S), QD
     Dates: start: 2020, end: 202009

REACTIONS (6)
  - Chronic obstructive pulmonary disease [Fatal]
  - COVID-19 [Fatal]
  - End stage renal disease [Fatal]
  - Hip fracture [Unknown]
  - Renal failure [Unknown]
  - Coronavirus test positive [Fatal]

NARRATIVE: CASE EVENT DATE: 20200820
